FAERS Safety Report 6448794-8 (Version None)
Quarter: 2009Q4

REPORT INFORMATION
  Report Type: 
  Country: None (occurrence: None)
  Receive Date: 20091120
  Receipt Date: 20091109
  Transmission Date: 20100525
  Serious: Yes (Other)
  Sender: FDA-Public Use
  Company Number: PHEH2006US04723

PATIENT
  Sex: Female
  Weight: 92.97 kg

DRUGS (18)
  1. AREDIA [Suspect]
     Indication: METASTASES TO BONE
     Dosage: 90MG
  2. ZOMETA [Suspect]
     Indication: METASTASES TO BONE
     Dosage: 4MG/100CC NS QMONTH
     Dates: start: 20041116, end: 20050810
  3. FEMARA [Concomitant]
     Dosage: 2.5 MG, QD
     Dates: start: 20041116
  4. TRICOR [Concomitant]
     Dosage: 145 MG, UNK
  5. VASOTEC [Concomitant]
     Dosage: UNK, UNK
  6. COREG [Concomitant]
     Dosage: 25 MG, UNK
  7. LIPITOR [Concomitant]
     Dosage: 10 MG, UNK
     Dates: start: 20050208
  8. PERCOCET [Concomitant]
     Indication: BACK PAIN
  9. PRILOSEC [Concomitant]
  10. DIGOXIN [Concomitant]
  11. GLUCOVANCE [Concomitant]
  12. BISPHOSPHONATES [Concomitant]
  13. LASIX [Concomitant]
  14. NEXIUM [Concomitant]
     Dosage: 40 MG, UNK
  15. DIGOXIN [Concomitant]
     Dosage: 125 UG, UNK
  16. ENALAPRIL MALEATE [Concomitant]
     Dosage: 10 MG, UNK
  17. HYDROCHLOROTHIAZIDE [Concomitant]
     Dosage: 25 MG, UNK
  18. GLYBURIDE [Concomitant]
     Dosage: 2.5 MG, UNK

REACTIONS (43)
  - BIOPSY CHEST WALL ABNORMAL [None]
  - BONE CANCER METASTATIC [None]
  - BONE DISORDER [None]
  - BREAST CANCER METASTATIC [None]
  - CARDIAC PACEMAKER INSERTION [None]
  - CENTRAL VENOUS CATHETERISATION [None]
  - COMPUTERISED TOMOGRAM ABNORMAL [None]
  - DEFORMITY [None]
  - DENTAL CARE [None]
  - DENTAL CARIES [None]
  - DENTAL DISCOMFORT [None]
  - DENTAL OPERATION [None]
  - DENTAL PROSTHESIS PLACEMENT [None]
  - EATING DISORDER SYMPTOM [None]
  - EMOTIONAL DISTRESS [None]
  - ENDODONTIC PROCEDURE [None]
  - FATIGUE [None]
  - FIBROSIS [None]
  - FISTULA [None]
  - GINGIVAL DISORDER [None]
  - GINGIVAL OPERATION [None]
  - GINGIVAL ULCERATION [None]
  - IMPAIRED HEALING [None]
  - KYPHOSIS [None]
  - LIFE EXPECTANCY SHORTENED [None]
  - LOOSE TOOTH [None]
  - LYMPHOEDEMA [None]
  - METASTASES TO LYMPH NODES [None]
  - MUSCULOSKELETAL PAIN [None]
  - ORAL DISCOMFORT [None]
  - ORAL INFECTION [None]
  - OSTEOMYELITIS [None]
  - OSTEONECROSIS [None]
  - PAIN [None]
  - PAIN IN JAW [None]
  - PERIODONTAL DISEASE [None]
  - PLEURAL EFFUSION [None]
  - TENDERNESS [None]
  - TOOTH DISORDER [None]
  - TOOTH EXTRACTION [None]
  - TOOTH FRACTURE [None]
  - TOOTH LOSS [None]
  - TOOTHACHE [None]
